FAERS Safety Report 17956259 (Version 1)
Quarter: 2020Q2

REPORT INFORMATION
  Report Type: Report from Study
  Country: None (occurrence: CA)
  Receive Date: 20200629
  Receipt Date: 20200629
  Transmission Date: 20200714
  Serious: Yes (Other)
  Sender: FDA-Public Use
  Company Number: CA-ABBVIE-20K-028-3458926-00

PATIENT
  Age: 68 Year
  Sex: Male

DRUGS (1)
  1. HUMIRA [Suspect]
     Active Substance: ADALIMUMAB
     Indication: CROHN^S DISEASE
     Route: 058
     Dates: start: 20150530

REACTIONS (8)
  - General physical health deterioration [Not Recovered/Not Resolved]
  - Small intestine ulcer [Not Recovered/Not Resolved]
  - Diarrhoea [Not Recovered/Not Resolved]
  - Cholelithiasis obstructive [Unknown]
  - Post procedural complication [Unknown]
  - Aphthous ulcer [Not Recovered/Not Resolved]
  - Cholecystitis infective [Unknown]
  - Post procedural diarrhoea [Unknown]

NARRATIVE: CASE EVENT DATE: 20200621
